FAERS Safety Report 8101085-1 (Version None)
Quarter: 2012Q1

REPORT INFORMATION
  Report Type: 
  Country: None (occurrence: None)
  Receive Date: 20120129
  Receipt Date: 20110908
  Transmission Date: 20120608
  Serious: No
  Sender: FDA-Public Use
  Company Number: US-ABBOTT-11P-163-0852591-00

PATIENT
  Age: 68 Year
  Sex: Female

DRUGS (8)
  1. AMBIEN [Concomitant]
     Indication: INSOMNIA
  2. UNKNOWN THYROID MEDICATION [Concomitant]
     Indication: THYROID DISORDER
  3. METHOTREXATE [Concomitant]
     Indication: PROSTATIC SPECIFIC ANTIGEN
  4. PRANDIN [Concomitant]
     Indication: DIABETES MELLITUS
     Dosage: DAILY
  5. UNKNOWN MEDICATION [Concomitant]
     Indication: GOUT
  6. LANTUS [Concomitant]
     Indication: DIABETES MELLITUS
     Dosage: AT NIGHT
  7. IRON [Concomitant]
     Indication: ANAEMIA
  8. HUMIRA [Suspect]
     Indication: PSORIATIC ARTHROPATHY
     Dates: start: 20110801

REACTIONS (3)
  - INCORRECT DOSE ADMINISTERED [None]
  - INJECTION SITE PAIN [None]
  - WRONG TECHNIQUE IN DRUG USAGE PROCESS [None]
